FAERS Safety Report 11344939 (Version 1)
Quarter: 2015Q3

REPORT INFORMATION
  Report Type: Spontaneous
  Country: US (occurrence: US)
  Receive Date: 20150806
  Receipt Date: 20150806
  Transmission Date: 20151125
  Serious: No
  Sender: FDA-Public Use
  Company Number: US-GLAXOSMITHKLINE-US2015111314

PATIENT
  Age: 52 Year
  Sex: Male

DRUGS (5)
  1. ZONISAMIDE. [Concomitant]
     Active Substance: ZONISAMIDE
  2. PHENOBARBITAL. [Concomitant]
     Active Substance: PHENOBARBITAL
  3. VENTOLIN HFA [Suspect]
     Active Substance: ALBUTEROL SULFATE
     Indication: CHRONIC OBSTRUCTIVE PULMONARY DISEASE
     Dosage: 2 PUFF(S), BID
     Route: 055
  4. SYMBICORT [Concomitant]
     Active Substance: BUDESONIDE\FORMOTEROL FUMARATE DIHYDRATE
  5. VENTOLIN HFA [Suspect]
     Active Substance: ALBUTEROL SULFATE
     Indication: LUNG DISORDER

REACTIONS (4)
  - Oropharyngeal pain [Recovering/Resolving]
  - Nasal congestion [Not Recovered/Not Resolved]
  - Haemoptysis [Recovering/Resolving]
  - Device use error [Recovered/Resolved]

NARRATIVE: CASE EVENT DATE: 201507
